FAERS Safety Report 12836195 (Version 1)
Quarter: 2016Q4

REPORT INFORMATION
  Report Type: Spontaneous
  Country: GB (occurrence: GB)
  Receive Date: 20161011
  Receipt Date: 20161011
  Transmission Date: 20170207
  Serious: Yes (Other)
  Sender: FDA-Public Use
  Company Number: GB-SEPTODONT-201603660

PATIENT
  Age: 43 Year
  Sex: Female

DRUGS (1)
  1. SEPTANEST 1:200.000 [Suspect]
     Active Substance: ARTICAINE HYDROCHLORIDE\EPINEPHRINE BITARTRATE
     Indication: LOCAL ANAESTHESIA
     Dosage: 1/3 OF THE AMPULE
     Route: 004
     Dates: start: 20160922, end: 20160922

REACTIONS (6)
  - Mydriasis [Recovered/Resolved]
  - Unresponsive to stimuli [Recovered/Resolved]
  - Clonus [Recovered/Resolved]
  - Pallor [Recovered/Resolved]
  - Dizziness [Recovered/Resolved]
  - Tension [Recovered/Resolved]

NARRATIVE: CASE EVENT DATE: 20160922
